FAERS Safety Report 12553266 (Version 1)
Quarter: 2016Q3

REPORT INFORMATION
  Report Type: Report from Study
  Country: US (occurrence: US)
  Receive Date: 20160713
  Receipt Date: 20160713
  Transmission Date: 20161109
  Serious: Yes (Hospitalization, Other)
  Sender: FDA-Public Use
  Company Number: US-GILEAD-2016-0215085

PATIENT
  Age: 72 Year
  Sex: Female
  Weight: 107.2 kg

DRUGS (11)
  1. CUBICIN [Concomitant]
     Active Substance: DAPTOMYCIN
  2. NOVOLOG [Concomitant]
     Active Substance: INSULIN ASPART
     Indication: TYPE 2 DIABETES MELLITUS
     Dosage: UNK
  3. BUMEX [Concomitant]
     Active Substance: BUMETANIDE
  4. DOXYCYCLINE. [Concomitant]
     Active Substance: DOXYCYCLINE
  5. IDELALISIB [Suspect]
     Active Substance: IDELALISIB
     Indication: CHRONIC LYMPHOCYTIC LEUKAEMIA
     Dosage: 150 MG, BID
     Route: 048
     Dates: start: 20160429, end: 20160516
  6. KLOR-CON [Concomitant]
     Active Substance: POTASSIUM CHLORIDE
     Indication: HYPOKALAEMIA
     Dosage: UNK
  7. IVIGLOB EX [Concomitant]
     Active Substance: HUMAN IMMUNOGLOBULIN G
     Indication: HYPOGAMMAGLOBULINAEMIA
     Dosage: 1 DF, Q1MONTH
  8. ATENOLOL. [Concomitant]
     Active Substance: ATENOLOL
     Dosage: UNK
     Dates: end: 201605
  9. ZETIA [Concomitant]
     Active Substance: EZETIMIBE
  10. VALSARTAN. [Concomitant]
     Active Substance: VALSARTAN
  11. XARELTO [Concomitant]
     Active Substance: RIVAROXABAN

REACTIONS (11)
  - Pyrexia [Recovered/Resolved]
  - Candida infection [Unknown]
  - Furuncle [Recovering/Resolving]
  - Leukopenia [Unknown]
  - Infection [Unknown]
  - Malaise [Recovered/Resolved]
  - Fatigue [Unknown]
  - Diarrhoea [Unknown]
  - Vomiting [Recovered/Resolved]
  - Sepsis [Unknown]
  - Pneumonia [Recovered/Resolved]

NARRATIVE: CASE EVENT DATE: 201604
